FAERS Safety Report 14553360 (Version 1)
Quarter: 2018Q1

REPORT INFORMATION
  Report Type: Report from Study
  Country: None (occurrence: AU)
  Receive Date: 20180220
  Receipt Date: 20180220
  Transmission Date: 20180509
  Serious: Yes (Hospitalization)
  Sender: FDA-Public Use
  Company Number: AU-ABBVIE-18S-008-2263051-00

PATIENT
  Sex: Male

DRUGS (2)
  1. NILUTAMIDE. [Suspect]
     Active Substance: NILUTAMIDE
     Indication: PROSTATE CANCER
     Route: 065
  2. LUCRIN DEPOT [Suspect]
     Active Substance: LEUPROLIDE ACETATE
     Indication: PROSTATE CANCER
     Dosage: 22.5 MG
     Route: 030
     Dates: start: 20171107

REACTIONS (1)
  - Pneumonitis [Recovering/Resolving]
